FAERS Safety Report 7820711-5 (Version None)
Quarter: 2011Q4

REPORT INFORMATION
  Report Type: 
  Country: None (occurrence: None)
  Receive Date: 20111013
  Receipt Date: 20110930
  Transmission Date: 20120403
  Serious: Yes (Hospitalization)
  Sender: FDA-Public Use
  Company Number: 2011MA014721

PATIENT
  Sex: Female

DRUGS (4)
  1. GALVUS (NO PREF. NAME) [Suspect]
     Indication: TYPE 2 DIABETES MELLITUS
     Dosage: 50 MG;BID;
     Dates: start: 20101101
  2. BETA BLOCKER [Concomitant]
  3. METFORMIN HYDROCHLORIDE [Suspect]
  4. GLIMEPIRIDE [Suspect]
     Indication: TYPE 2 DIABETES MELLITUS

REACTIONS (2)
  - VENTRICULAR FIBRILLATION [None]
  - TACHYCARDIA [None]
